FAERS Safety Report 13937829 (Version 1)
Quarter: 2017Q3

REPORT INFORMATION
  Report Type: Spontaneous
  Country: IN (occurrence: IN)
  Receive Date: 20170905
  Receipt Date: 20170905
  Transmission Date: 20171127
  Serious: Yes (Death)
  Sender: FDA-Public Use
  Company Number: IN-PFIZER INC-2017379371

PATIENT
  Sex: Male

DRUGS (1)
  1. VORICONAZOLE. [Suspect]
     Active Substance: VORICONAZOLE
     Dosage: UNK (FOR TWO WEEKS)

REACTIONS (8)
  - Diarrhoea [Fatal]
  - Acute kidney injury [Fatal]
  - Lower respiratory tract infection [Fatal]
  - Hypokalaemia [Fatal]
  - Acidosis [Fatal]
  - Respiratory failure [Fatal]
  - Sepsis [Fatal]
  - Acute respiratory distress syndrome [Fatal]
